FAERS Safety Report 7818710-2 (Version None)
Quarter: 2011Q4

REPORT INFORMATION
  Report Type: 
  Country: None (occurrence: None)
  Receive Date: 20111018
  Receipt Date: 20111006
  Transmission Date: 20120403
  Serious: No
  Sender: FDA-Public Use
  Company Number: US-BIOGENIDEC-2011BI010018

PATIENT
  Age: 40 Year
  Sex: Female

DRUGS (1)
  1. TYSABRI [Suspect]
     Indication: MULTIPLE SCLEROSIS
     Route: 042
     Dates: start: 20110216, end: 20110822

REACTIONS (8)
  - GLAUCOMA [None]
  - VISUAL IMPAIRMENT [None]
  - SLEEP APNOEA SYNDROME [None]
  - SOMNOLENCE [None]
  - DENTAL CARIES [None]
  - PAIN [None]
  - ASTHENIA [None]
  - MULTIPLE SCLEROSIS [None]
